FAERS Safety Report 5804725-2 (Version None)
Quarter: 2008Q3

REPORT INFORMATION
  Report Type: 
  Country: None (occurrence: None)
  Receive Date: 20080709
  Receipt Date: 20080708
  Transmission Date: 20090109
  Serious: Yes (Death, Life-Threatening, Hospitalization, Other)
  Sender: FDA-Public Use
  Company Number: US-BRISTOL-MYERS SQUIBB COMPANY-13462478

PATIENT
  Age: 59 Year
  Sex: Male
  Weight: 122 kg

DRUGS (17)
  1. PACLITAXEL [Suspect]
     Indication: NON-SMALL CELL LUNG CANCER
     Dosage: INTERRUPTED ON 28-JUN-2006. FIRST DOSE WAS ON 05-JUN-2006.
     Route: 042
     Dates: start: 20060628, end: 20060628
  2. CARBOPLATIN [Suspect]
     Indication: NON-SMALL CELL LUNG CANCER
     Dosage: INTERRUPTED ON 12-JUN-2006. FIRST DOSE WAS ON 05-JUN-2006
     Route: 042
     Dates: start: 20060612, end: 20060612
  3. PF-3512676 [Suspect]
     Indication: NON-SMALL CELL LUNG CANCER
     Dosage: DAYS 8 AND 15
     Route: 058
     Dates: start: 20060612, end: 20060619
  4. SENOKOT [Concomitant]
     Route: 048
     Dates: end: 20060703
  5. OXYCODONE HCL + ACETAMINOPHEN [Concomitant]
     Route: 048
     Dates: start: 20060501, end: 20060703
  6. FLOVENT [Concomitant]
     Route: 048
     Dates: start: 20050201, end: 20060703
  7. ALBUTEROL [Concomitant]
     Route: 048
     Dates: start: 20050201, end: 20060703
  8. ASPIRIN [Concomitant]
     Route: 048
     Dates: start: 19930101, end: 20060703
  9. LIPITOR [Concomitant]
     Route: 048
     Dates: start: 19930101, end: 20060703
  10. VERAPAMIL [Concomitant]
     Route: 048
     Dates: start: 19930101, end: 20060703
  11. DYAZIDE [Concomitant]
     Route: 048
     Dates: start: 19930101, end: 20060703
  12. NAPROXEN [Concomitant]
     Route: 048
     Dates: start: 19930101, end: 20060703
  13. MULTI-VITAMINS [Concomitant]
     Route: 048
     Dates: end: 20060703
  14. ZOFRAN [Concomitant]
     Route: 048
     Dates: start: 20060606, end: 20060703
  15. MILK OF MAGNESIA [Concomitant]
     Route: 048
     Dates: start: 20060301, end: 20060703
  16. LORAZEPAM [Concomitant]
     Route: 048
     Dates: start: 20060612, end: 20060703
  17. MORPHINE [Concomitant]
     Route: 048
     Dates: start: 20060619, end: 20060703

REACTIONS (7)
  - ACUTE RESPIRATORY DISTRESS SYNDROME [None]
  - CARDIAC FAILURE CONGESTIVE [None]
  - DEATH [None]
  - DYSPNOEA [None]
  - FEBRILE NEUTROPENIA [None]
  - PNEUMONIA [None]
  - STAPHYLOCOCCAL INFECTION [None]
